FAERS Safety Report 4695033-4 (Version None)
Quarter: 2005Q2

REPORT INFORMATION
  Report Type: 
  Country: None (occurrence: None)
  Receive Date: 20050617
  Receipt Date: 20050603
  Transmission Date: 20051028
  Serious: Yes (Hospitalization)
  Sender: FDA-Public Use
  Company Number: TNZFR200500055

PATIENT
  Age: 42 Year
  Sex: Male

DRUGS (6)
  1. INNOHEP [Suspect]
     Dosage: 7000 IU, SUBCUTANEOUS
     Route: 058
     Dates: start: 20050330, end: 20050405
  2. PYRIMETHAMINE TAB [Suspect]
     Dosage: 1 DOSAGE FORMS, ORAL
     Route: 048
     Dates: start: 20050330
  3. AMOXICILLIN TRIHYDRATE [Suspect]
     Dates: start: 20050331, end: 20050404
  4. CLINDAMYCIN HYDROCHLORIDE [Suspect]
     Dosage: 2 DOSAGE FORMS (1 DOSAGE FORMS, TWICE DAILY), ORAL
     Route: 048
     Dates: start: 20050330
  5. IMOVANE (ZOPICLONE) [Suspect]
     Dosage: 1 DOSAGE FORMS, ORAL
     Route: 048
     Dates: start: 20050401
  6. FLUCONAZOLE [Suspect]
     Dosage: 100 MG, ORAL
     Route: 048
     Dates: start: 20050331, end: 20050404

REACTIONS (1)
  - NEUTROPENIA [None]
